FAERS Safety Report 5941785-2 (Version None)
Quarter: 2008Q4

REPORT INFORMATION
  Report Type: 
  Country: None (occurrence: None)
  Receive Date: 20081105
  Receipt Date: 20081030
  Transmission Date: 20090506
  Serious: Yes (Other)
  Sender: FDA-Public Use
  Company Number: PHNU2008DE01499

PATIENT
  Sex: Male
  Weight: 76 kg

DRUGS (5)
  1. RASILEZ [Suspect]
     Indication: HYPERTENSION
     Dosage: 1 DF, QD
     Route: 048
     Dates: start: 20080402, end: 20080404
  2. RASILEZ [Suspect]
     Dosage: 1 DF, QD
     Dates: start: 20080404, end: 20080404
  3. RASILEZ [Suspect]
     Dosage: 1 DF, QD
     Route: 048
     Dates: start: 20080404, end: 20080404
  4. ACETYLSALICYLIC ACID SRT [Concomitant]
     Indication: CORONARY ARTERY DISEASE
     Dosage: 100 MG/D
     Dates: start: 20000101
  5. CLEXANE [Concomitant]
     Indication: THROMBOSIS PROPHYLAXIS
     Dosage: 0.3 ML
     Route: 058
     Dates: start: 20080401

REACTIONS (5)
  - CARDIAC ARREST [None]
  - CARDIAC DISORDER [None]
  - CIRCULATORY COLLAPSE [None]
  - HYPOTENSION [None]
  - VENTRICULAR TACHYCARDIA [None]
